FAERS Safety Report 7258197-4 (Version None)
Quarter: 2011Q1

REPORT INFORMATION
  Report Type: 
  Country: None (occurrence: None)
  Receive Date: 20110129
  Receipt Date: 20100707
  Transmission Date: 20110831
  Serious: No
  Sender: FDA-Public Use
  Company Number: US-ABBOTT-10P-163-0655838-00

PATIENT
  Age: 63 Year
  Sex: Female

DRUGS (4)
  1. KLONOPIN [Concomitant]
     Indication: DEPRESSION
  2. ABILIFY [Concomitant]
     Indication: DEPRESSION
  3. HUMIRA [Suspect]
     Indication: RHEUMATOID ARTHRITIS
     Dates: start: 20100501
  4. REMERON [Concomitant]
     Indication: DEPRESSION

REACTIONS (3)
  - NAIL INFECTION [None]
  - PAIN IN EXTREMITY [None]
  - ERYTHEMA [None]
